FAERS Safety Report 8134049-2 (Version None)
Quarter: 2012Q1

REPORT INFORMATION
  Report Type: 
  Country: None (occurrence: None)
  Receive Date: 20120214
  Receipt Date: 20120203
  Transmission Date: 20120608
  Serious: Yes (Hospitalization)
  Sender: FDA-Public Use
  Company Number: IT-BIOGENIDEC-2012BI004226

PATIENT
  Age: 44 Year
  Sex: Male

DRUGS (3)
  1. RAMIPRIL [Concomitant]
     Indication: HYPERTENSION
  2. TYSABRI [Suspect]
     Indication: RELAPSING-REMITTING MULTIPLE SCLEROSIS
     Route: 042
     Dates: start: 20090601, end: 20110601
  3. LASIX [Concomitant]
     Indication: HYPERTENSION

REACTIONS (2)
  - PROGRESSIVE MULTIFOCAL LEUKOENCEPHALOPATHY [None]
  - CENTRAL NERVOUS SYSTEM LESION [None]
